FAERS Safety Report 8209154-2 (Version None)
Quarter: 2012Q1

REPORT INFORMATION
  Report Type: 
  Country: None (occurrence: None)
  Receive Date: 20120314
  Receipt Date: 20120308
  Transmission Date: 20120608
  Serious: Yes (Disabling)
  Sender: FDA-Public Use
  Company Number: DE-BAYER-2012-001492

PATIENT
  Age: 71 Year
  Sex: Male
  Weight: 70 kg

DRUGS (5)
  1. DOTAREM [Suspect]
     Indication: LIP AND/OR ORAL CAVITY CANCER
     Dosage: UNK
     Route: 042
     Dates: start: 20090908
  2. MULTIHANCE [Suspect]
     Indication: LIP AND/OR ORAL CAVITY CANCER
     Dosage: UNK
     Route: 042
     Dates: start: 20091214
  3. BLOOD PRESSURE MEDICATION (NOS) [Concomitant]
  4. GADAVIST [Suspect]
     Indication: LIP AND/OR ORAL CAVITY CANCER
     Dosage: UNK
     Route: 042
     Dates: start: 20090320
  5. GADAVIST [Suspect]
     Dosage: UNK
     Route: 042
     Dates: start: 20101229

REACTIONS (1)
  - SKIN HYPERPIGMENTATION [None]
